FAERS Safety Report 4910926-8 (Version None)
Quarter: 2006Q1

REPORT INFORMATION
  Report Type: 
  Country: None (occurrence: None)
  Receive Date: 20060209
  Receipt Date: 20060123
  Transmission Date: 20060701
  Serious: Yes (Life-Threatening)
  Sender: FDA-Public Use
  Company Number: DE200601004120

PATIENT
  Age: 30 Year
  Sex: Female

DRUGS (3)
  1. CYMBALTA [Suspect]
     Indication: DEPRESSION
     Dosage: 60 MG, ORAL   : 30 MG, ORAL
     Route: 048
     Dates: start: 20050401
  2. CYMBALTA [Suspect]
     Indication: DEPRESSION
     Dosage: 60 MG, ORAL   : 30 MG, ORAL
     Route: 048
     Dates: start: 20060117
  3. MIRTAZAPINE [Concomitant]

REACTIONS (1)
  - DIABETES MELLITUS INSULIN-DEPENDENT [None]
